FAERS Safety Report 9833429 (Version 1)
Quarter: 2014Q1

REPORT INFORMATION
  Report Type: Spontaneous
  Country: US (occurrence: US)
  Receive Date: 20140121
  Receipt Date: 20140121
  Transmission Date: 20141002
  Serious: Yes (Hospitalization)
  Sender: FDA-Public Use
  Company Number: US-ROCHE-1333731

PATIENT
  Age: 33 Year
  Sex: Female

DRUGS (29)
  1. XOLAIR [Suspect]
     Indication: ASTHMA
     Dosage: DATE OF MOST RECENT DOSE 05/OCT/2009
     Route: 065
  2. ALBUTEROL [Concomitant]
     Indication: ASTHMA
     Dosage: 2 PUFFS EVERY DAY OR TWICE A DAY AS REQUIRED
     Route: 055
     Dates: start: 2008
  3. ALBUTEROL [Concomitant]
     Dosage: 0.083 % EVERY 2 HOURS AS REQUIRED
     Route: 055
     Dates: start: 1998
  4. DIAZEPAM [Concomitant]
     Indication: ANXIETY
     Dosage: AS REQUIRED
     Route: 048
     Dates: start: 20081008
  5. SINGULAIR [Concomitant]
     Indication: ASTHMA
     Route: 048
  6. LORATADINE [Concomitant]
     Indication: HYPERSENSITIVITY
     Route: 048
  7. ALBUTEROL [Concomitant]
     Indication: DYSPNOEA
     Route: 055
  8. ALBUTEROL [Concomitant]
     Indication: ASTHMA
  9. VERAPAMIL [Concomitant]
     Indication: HYPERTENSION
     Route: 048
  10. TYLENOL [Concomitant]
     Indication: PAIN
     Dosage: AS REQUIRED
     Route: 065
  11. HYDROCHLOROTHIAZIDE/TRIAMTERENE [Concomitant]
     Indication: HYPERTENSION
     Dosage: 75/50 MG
     Route: 048
  12. OMEPRAZOLE [Concomitant]
     Route: 048
  13. AZITHROMYCIN [Concomitant]
     Route: 048
     Dates: end: 2009
  14. PREDNISONE [Concomitant]
     Indication: ASTHMA
     Route: 048
     Dates: end: 20090506
  15. PREDNISONE [Concomitant]
     Indication: CHRONIC OBSTRUCTIVE PULMONARY DISEASE
  16. AMLODIPINE [Concomitant]
     Indication: HYPERTENSION
     Route: 048
     Dates: start: 2009
  17. HYZAAR (UNITED STATES) [Concomitant]
     Indication: HYPERTENSION
     Dosage: 100/25 MH
     Route: 048
     Dates: start: 2009
  18. HYZAAR (UNITED STATES) [Concomitant]
     Indication: FLUID RETENTION
  19. SINGULAIR [Concomitant]
     Indication: ASTHMA
     Route: 048
  20. ZANTAC [Concomitant]
     Indication: GASTROOESOPHAGEAL REFLUX DISEASE
     Route: 048
  21. APAP/OXYCODONE [Concomitant]
     Indication: MIGRAINE
     Dosage: 5/325 MG
     Route: 048
     Dates: start: 2008
  22. APAP/OXYCODONE [Concomitant]
     Indication: BACK PAIN
  23. PROMETHAZINE [Concomitant]
     Indication: NAUSEA
     Route: 048
     Dates: start: 20090810
  24. THEOPHYLLINE [Concomitant]
     Indication: ASTHMA
     Route: 048
     Dates: start: 20091103
  25. PREDNISONE [Concomitant]
     Indication: ASTHMA
     Route: 048
     Dates: start: 1993
  26. PREDNISONE [Concomitant]
     Route: 048
     Dates: start: 1993
  27. ACIPHEX [Concomitant]
     Indication: GASTROOESOPHAGEAL REFLUX DISEASE
     Route: 048
  28. SYMBICORT [Concomitant]
     Indication: ASTHMA
     Dosage: 160/4.5 MCG
     Route: 055
     Dates: start: 2007
  29. CLONAZEPAM [Concomitant]
     Route: 048
     Dates: start: 20091007

REACTIONS (1)
  - Anaphylactic reaction [Unknown]
